FAERS Safety Report 20640165 (Version 7)
Quarter: 2023Q2

REPORT INFORMATION
  Report Type: Other
  Country: AU (occurrence: AU)
  Receive Date: 20220327
  Receipt Date: 20230616
  Transmission Date: 20230722
  Serious: Yes (Other)
  Sender: FDA-Public Use
  Company Number: AU-TOLMAR, INC.-21AU031799

PATIENT
  Age: 76 Year
  Sex: Male

DRUGS (2)
  1. ELIGARD [Suspect]
     Active Substance: LEUPROLIDE ACETATE
     Indication: Prostate cancer
     Dosage: 22.5 MILLIGRAM, Q 3 MONTH
     Dates: start: 20190913
  2. CYPROTERONE ACETATE [Suspect]
     Active Substance: CYPROTERONE ACETATE
     Indication: Product used for unknown indication
     Dosage: UNK
     Dates: start: 202209

REACTIONS (13)
  - Prostatic specific antigen increased [Not Recovered/Not Resolved]
  - COVID-19 [Recovered/Resolved]
  - Flat affect [Unknown]
  - Weight decreased [Unknown]
  - Mobility decreased [Unknown]
  - Condition aggravated [Unknown]
  - Urinary incontinence [Unknown]
  - Weight increased [Unknown]
  - Back pain [Unknown]
  - Blood urine present [Unknown]
  - Nausea [Unknown]
  - Haematuria [Unknown]
  - Dysuria [Unknown]

NARRATIVE: CASE EVENT DATE: 20211101
